FAERS Safety Report 13727801 (Version 1)
Quarter: 2020Q3

REPORT INFORMATION
  Report Type: Report from Study
  Country: CZ (occurrence: CZ)
  Receive Date: 20170707
  Receipt Date: 20170707
  Transmission Date: 20201105
  Serious: Yes (Hospitalization, Other)
  Sender: FDA-Public Use
  Company Number: CZ-BAXTER-2017BAX027007

PATIENT
  Age: 33 Year
  Sex: Female
  Weight: 58 kg

DRUGS (24)
  1. PROPOFOLUM [Concomitant]
     Active Substance: PROPOFOL
     Indication: MAINTENANCE OF ANAESTHESIA
     Route: 042
     Dates: start: 20170321, end: 20170321
  2. BROMAZEPAMUM [Concomitant]
     Indication: PREMEDICATION
     Route: 048
     Dates: start: 20170320, end: 20170320
  3. ESCINUM/AESCIN [Concomitant]
     Indication: PROPHYLAXIS
     Route: 048
     Dates: start: 20170322, end: 20170402
  4. FRAXIPARINE [Concomitant]
     Active Substance: NADROPARIN CALCIUM
     Indication: THROMBOSIS PROPHYLAXIS
     Route: 058
     Dates: start: 20170323, end: 20170402
  5. FLAVOBION [Concomitant]
     Indication: HEPATIC ENZYME INCREASED
     Route: 048
     Dates: start: 20170329, end: 20170402
  6. SUFENTANIL [Concomitant]
     Active Substance: SUFENTANIL
     Indication: MAINTENANCE OF ANAESTHESIA
     Route: 042
     Dates: start: 20170321, end: 20170321
  7. CEFAZOLIN [Concomitant]
     Active Substance: CEFAZOLIN
     Indication: INFECTION PROPHYLAXIS
     Route: 042
     Dates: start: 20170321, end: 20170321
  8. ACETAZOLAMIDUM [Concomitant]
     Indication: CEREBROSPINAL FLUID LEAKAGE
     Route: 048
     Dates: start: 20170328, end: 20170402
  9. ROCURONII BROMIDUM [Concomitant]
     Indication: MAINTENANCE OF ANAESTHESIA
     Route: 042
     Dates: start: 20170321, end: 20170321
  10. EFEDRIN [Concomitant]
     Active Substance: EPHEDRINE
     Indication: BLOOD PRESSURE DECREASED
     Route: 042
     Dates: start: 20170321, end: 20170321
  11. MIDAZOLAM HYDROCHLORIDE. [Concomitant]
     Active Substance: MIDAZOLAM HYDROCHLORIDE
     Indication: PREMEDICATION
     Route: 048
     Dates: start: 20170321, end: 20170321
  12. ETAMSYLATUM [Concomitant]
     Indication: HAEMORRHAGE PROPHYLAXIS
     Route: 042
     Dates: start: 20170321, end: 20170322
  13. DIAZEPAM. [Concomitant]
     Active Substance: DIAZEPAM
     Indication: MAINTENANCE OF ANAESTHESIA
     Route: 042
     Dates: start: 20170321, end: 20170321
  14. ALLERGENORUM EXTRACTUM PURIFICATUM ADSORPTUM /ALUTARD [Concomitant]
     Indication: ASTHMA
     Route: 058
  15. ONDANSETRONI HYDROCHLORIDUM DIHYDRICUM [Concomitant]
     Indication: PROCEDURAL NAUSEA
     Route: 042
     Dates: start: 20170321, end: 20170321
  16. FERROSI SULFAS HETAHYDRICUS [Concomitant]
     Indication: ANAEMIA POSTOPERATIVE
     Route: 048
     Dates: start: 20170322, end: 20170402
  17. KALIUM CHLORATUM [Concomitant]
     Active Substance: POTASSIUM CHLORIDE
     Indication: HYPOKALAEMIA
     Route: 048
     Dates: start: 20170327, end: 20170329
  18. HYDROCORTISONE. [Concomitant]
     Active Substance: HYDROCORTISONE
     Indication: HYPOTHALAMO-PITUITARY DISORDER
     Dosage: DECREASING DOSAGE
     Route: 042
     Dates: start: 20170321, end: 20170326
  19. OMEPRASOL [Concomitant]
     Indication: PROPHYLAXIS AGAINST GASTROINTESTINAL ULCER
     Route: 042
     Dates: start: 20170321, end: 20170321
  20. METAMIZOLUM [Concomitant]
     Indication: PAIN PROPHYLAXIS
     Route: 042
     Dates: start: 20170321, end: 20170322
  21. ULTRACOD [Concomitant]
     Indication: PAIN PROPHYLAXIS
     Route: 048
     Dates: start: 20170322, end: 20170331
  22. MANITOLUM [Concomitant]
     Indication: PROPHYLAXIS
     Route: 042
     Dates: start: 20170321, end: 20170322
  23. MANITOLUM [Concomitant]
     Indication: PROPHYLAXIS
     Route: 042
     Dates: start: 20170321, end: 20170321
  24. TISSEEL [Suspect]
     Active Substance: FIBRINOGEN HUMAN\THROMBIN HUMAN
     Indication: TISSUE SEALING
     Route: 061
     Dates: start: 20170321, end: 20170321

REACTIONS (1)
  - Cerebrospinal fluid leakage [Recovered/Resolved]

NARRATIVE: CASE EVENT DATE: 20170327
